FAERS Safety Report 12617857 (Version 3)
Quarter: 2016Q4

REPORT INFORMATION
  Report Type: Spontaneous
  Country: US (occurrence: US)
  Receive Date: 20160803
  Receipt Date: 20161025
  Transmission Date: 20170207
  Serious: Yes (Hospitalization)
  Sender: FDA-Public Use
  Company Number: US-PFIZER INC-2016369049

PATIENT
  Age: 78 Year
  Sex: Female
  Weight: 63.5 kg

DRUGS (6)
  1. SYNTHROID [Concomitant]
     Active Substance: LEVOTHYROXINE SODIUM
     Dosage: 0.05 UNK, UNK
  2. LOSARTAN. [Concomitant]
     Active Substance: LOSARTAN
     Dosage: 100 MG, UNK
  3. ADVIL [Suspect]
     Active Substance: IBUPROFEN
     Indication: HEADACHE
     Dosage: 200 MG, AS NEEDED 4 OR 5 TIMES A WEEK
     Route: 048
  4. ADVIL [Suspect]
     Active Substance: IBUPROFEN
     Indication: SCIATICA
  5. ADVIL [Suspect]
     Active Substance: IBUPROFEN
     Indication: BACK PAIN
     Dosage: 200 MG, AS NEEDED (4 OR 5 TIMES A WEEK )
     Route: 048
     Dates: end: 20160730
  6. BABY ASPIRIN [Concomitant]
     Active Substance: ASPIRIN
     Dosage: 82 UNK, UNK

REACTIONS (8)
  - Foreign body [Recovered/Resolved]
  - Feeding disorder [Recovered/Resolved]
  - Throat tightness [Recovered/Resolved]
  - Product difficult to swallow [Unknown]
  - Pharyngeal oedema [Unknown]
  - Dysphagia [Unknown]
  - Throat irritation [Recovered/Resolved]
  - Oropharyngeal pain [Not Recovered/Not Resolved]

NARRATIVE: CASE EVENT DATE: 20160730
